FAERS Safety Report 20628306 (Version 1)
Quarter: 2022Q1

REPORT INFORMATION
  Report Type: Spontaneous
  Country: None (occurrence: BE)
  Receive Date: 20220323
  Receipt Date: 20220323
  Transmission Date: 20220424
  Serious: Yes (Hospitalization)
  Sender: FDA-Public Use
  Company Number: BE-B.Braun Medical Inc.-2127048

PATIENT
  Age: 24 Month
  Sex: Male
  Weight: 15.8 kg

DRUGS (1)
  1. ACETAMINOPHEN [Suspect]
     Active Substance: ACETAMINOPHEN

REACTIONS (15)
  - Irritability [Unknown]
  - Balance disorder [Unknown]
  - Poor quality sleep [Unknown]
  - Restlessness [Unknown]
  - Crying [Unknown]
  - Agitation [Unknown]
  - Dependent personality disorder [Unknown]
  - Ataxia [Unknown]
  - Sleep talking [Unknown]
  - Blood lactic acid increased [Unknown]
  - Psychomotor hyperactivity [Unknown]
  - Abdominal pain upper [Unknown]
  - Coordination abnormal [Unknown]
  - Micturition disorder [Unknown]
  - Listless [Unknown]
